FAERS Safety Report 11272549 (Version 9)
Quarter: 2016Q1

REPORT INFORMATION
  Report Type: Spontaneous
  Country: US (occurrence: US)
  Receive Date: 20150715
  Receipt Date: 20160201
  Transmission Date: 20160525
  Serious: Yes (Hospitalization, Other)
  Sender: FDA-Public Use
  Company Number: US-GLAXOSMITHKLINE INC.-US2014GSK054548

PATIENT
  Age: 40 Year
  Sex: Female
  Weight: 117.91 kg

DRUGS (14)
  1. FLOLAN [Suspect]
     Active Substance: EPOPROSTENOL SODIUM
     Dosage: 9 NG/KG/MIN, CO
     Dates: start: 20141205
  2. FLOLAN [Suspect]
     Active Substance: EPOPROSTENOL SODIUM
     Dosage: 6 NG/KG/MIN, CONCENTRATION 15,000 NG/ML, PUMP RATE 66 ML/DAY, VIAL STRENGTH 1.5MG
     Dates: start: 20141205
  3. FLOLAN [Suspect]
     Active Substance: EPOPROSTENOL SODIUM
     Indication: PULMONARY ARTERIAL HYPERTENSION
     Dosage: 6 DF, CO
     Route: 065
     Dates: start: 20141205
  4. FLOLAN [Suspect]
     Active Substance: EPOPROSTENOL SODIUM
     Dosage: 6 NG/KG/MIN, CONCENTRATION 15,000 NG/ML, PUMP RATE 66 ML/DAY, VIAL STRENGTH 1.5MG
     Dates: start: 20141205
  5. FLOLAN [Suspect]
     Active Substance: EPOPROSTENOL SODIUM
     Dosage: 9 NG/KG/MIN CONTINUOUSLY,VIAL STRENGTH 1.5,CONCENTRATION:30000 NG/ML
     Dates: start: 20141205
  6. FLOLAN [Suspect]
     Active Substance: EPOPROSTENOL SODIUM
     Dosage: 17 NG/KG/MIN (CONCENTRATION 30,000 NG/ML, PUMP RATE 94 ML/DAY, VIAL STRENGTH 1.5 MG), CO
     Route: 042
  7. FLOLAN [Suspect]
     Active Substance: EPOPROSTENOL SODIUM
     Dosage: 9 UNK, UNK
     Dates: start: 20141205
  8. FLOLAN [Suspect]
     Active Substance: EPOPROSTENOL SODIUM
     Dosage: 14 NG/KG/MIN CONTINUOUSLY; CONCENTRATION: 15,000 NG/ML; PUMP RATE: 75 ML/DAY; VIAL STRENGTH: 1.5 MG
     Route: 042
     Dates: start: 20141205
  9. OPSUMIT [Concomitant]
     Active Substance: MACITENTAN
  10. FLOLAN [Suspect]
     Active Substance: EPOPROSTENOL SODIUM
     Dosage: 8 NG/KG/MIN CO
     Route: 042
     Dates: start: 20141205
  11. REVATIO [Concomitant]
     Active Substance: SILDENAFIL CITRATE
  12. CARDIZEM CD [Concomitant]
     Active Substance: DILTIAZEM HYDROCHLORIDE
  13. FLOLAN [Suspect]
     Active Substance: EPOPROSTENOL SODIUM
     Dosage: 10 NG/KG/MIN CONTINUOUSLY; CONCENTRATION: 15,000 NG/ML; PUMP RATE: 62 ML/DAY; VIAL STRENGTH: 1.5 MG
     Route: 042
     Dates: start: 20141205
  14. FLOLAN [Suspect]
     Active Substance: EPOPROSTENOL SODIUM
     Dosage: 8.5 NG/KG/MIN CONTINUOUSLY

REACTIONS (42)
  - Infusion site infection [Unknown]
  - Catheter site nodule [Recovered/Resolved]
  - Catheter site haemorrhage [Unknown]
  - Pulmonary function test decreased [Recovering/Resolving]
  - Lung disorder [Unknown]
  - Bacterial infection [Unknown]
  - Nausea [Not Recovered/Not Resolved]
  - Malaise [Not Recovered/Not Resolved]
  - Wound [Unknown]
  - Headache [Not Recovered/Not Resolved]
  - Device alarm issue [Not Recovered/Not Resolved]
  - Dizziness [Unknown]
  - Cough [Unknown]
  - Hospice care [Unknown]
  - Loss of consciousness [Unknown]
  - Catheter site erythema [Recovered/Resolved]
  - Catheter site inflammation [Recovered/Resolved]
  - Catheter site bruise [Recovered/Resolved]
  - Polyuria [Unknown]
  - Cardiac disorder [Unknown]
  - Overdose [Unknown]
  - Central venous catheterisation [Unknown]
  - Drug ineffective [Unknown]
  - Fatigue [Unknown]
  - Laceration [Unknown]
  - Chest discomfort [Not Recovered/Not Resolved]
  - Vomiting [Not Recovered/Not Resolved]
  - Chest pain [Unknown]
  - Decreased appetite [Unknown]
  - Home care [Unknown]
  - Hospitalisation [Unknown]
  - Pneumonia [Unknown]
  - Device related infection [Unknown]
  - Oedema [Unknown]
  - Weight decreased [Unknown]
  - Painful respiration [Not Recovered/Not Resolved]
  - Dehydration [Unknown]
  - Feeling hot [Not Recovered/Not Resolved]
  - Frustration tolerance decreased [Unknown]
  - Dyspnoea [Unknown]
  - Head injury [Unknown]
  - Fall [Unknown]

NARRATIVE: CASE EVENT DATE: 20141205
